FAERS Safety Report 4741331-5 (Version None)
Quarter: 2005Q3

REPORT INFORMATION
  Report Type: 
  Country: None (occurrence: None)
  Receive Date: 20050808
  Receipt Date: 20050725
  Transmission Date: 20060218
  Serious: Yes (Other)
  Sender: FDA-Public Use
  Company Number: 2005106744

PATIENT
  Age: 29 Year
  Sex: Female
  Weight: 83.0083 kg

DRUGS (3)
  1. DEPO-PROVERA [Suspect]
     Indication: CONTRACEPTION
     Dosage: SEE IMAGE, INTRAMUSCULAR
     Route: 030
     Dates: start: 19940830, end: 19940830
  2. DEPO-PROVERA [Suspect]
     Indication: CONTRACEPTION
     Dosage: SEE IMAGE, INTRAMUSCULAR
     Route: 030
     Dates: start: 20050407, end: 20050407
  3. WELLBUTRIN [Concomitant]

REACTIONS (5)
  - BARRETT'S OESOPHAGUS [None]
  - BREAST MASS [None]
  - CERVICAL DYSPLASIA [None]
  - OESOPHAGEAL ULCER [None]
  - OSTEOPENIA [None]
